FAERS Safety Report 8731485 (Version 2)
Quarter: 2013Q2

REPORT INFORMATION
  Report Type: Spontaneous
  Country: MX (occurrence: MX)
  Receive Date: 20120820
  Receipt Date: 20130423
  Transmission Date: 20140414
  Serious: Yes (Death, Other)
  Sender: FDA-Public Use
  Company Number: PHHY2012MX030544

PATIENT
  Age: 64 Year
  Sex: Female

DRUGS (3)
  1. STALEVO [Suspect]
     Indication: PARKINSON^S DISEASE
     Dosage: 200/150/37.5 MG, 2 DF DAILY
     Route: 048
     Dates: start: 201101, end: 20120624
  2. LYRICA [Concomitant]
     Dosage: 1 DF, DAILY
     Route: 048
     Dates: start: 201101
  3. TAFIL [Concomitant]
     Indication: SLEEP DISORDER
     Dosage: 0.75 MG, DAILY
     Route: 048
     Dates: start: 2009

REACTIONS (8)
  - Cardio-respiratory arrest [Fatal]
  - Fatigue [Fatal]
  - Pneumonia [Unknown]
  - Parkinson^s disease [Unknown]
  - Disease progression [Unknown]
  - Dysphagia [Not Recovered/Not Resolved]
  - Trismus [Not Recovered/Not Resolved]
  - Speech disorder [Not Recovered/Not Resolved]
